FAERS Safety Report 16573613 (Version 1)
Quarter: 2019Q3

REPORT INFORMATION
  Report Type: Spontaneous
  Country: US (occurrence: US)
  Receive Date: 20190715
  Receipt Date: 20190715
  Transmission Date: 20191004
  Serious: No
  Sender: FDA-Public Use
  Company Number: US-MILLICENT HOLDINGS LTD.-MILL20192308

PATIENT
  Age: 63 Year
  Sex: Female

DRUGS (1)
  1. FEMRING [Suspect]
     Active Substance: ESTRADIOL ACETATE
     Indication: BLOOD OESTROGEN DECREASED
     Dosage: 0.05 MG/DAY
     Route: 067
     Dates: start: 20190624, end: 20190624

REACTIONS (3)
  - Medical device discomfort [Recovered/Resolved]
  - Device expulsion [Recovered/Resolved]
  - Complication of device insertion [Recovered/Resolved]

NARRATIVE: CASE EVENT DATE: 20190624
